FAERS Safety Report 19055437 (Version 1)
Quarter: 2021Q1

REPORT INFORMATION
  Report Type: Other
  Country: IN (occurrence: IN)
  Receive Date: 20210324
  Receipt Date: 20210324
  Transmission Date: 20210420
  Serious: Yes (Hospitalization, Other)
  Sender: FDA-Public Use
  Company Number: IN-INVATECH-000052

PATIENT
  Age: 62 Year
  Sex: Male

DRUGS (2)
  1. LOSARTAN. [Concomitant]
     Active Substance: LOSARTAN
     Indication: HYPERTENSION
     Dosage: 50 MG ONCE DAILY
  2. NAPROXEN. [Suspect]
     Active Substance: NAPROXEN
     Indication: MIGRAINE
     Dosage: 500 MG TWICE DAILY FOR ONE WEEK

REACTIONS (3)
  - Tubulointerstitial nephritis [Recovering/Resolving]
  - Renal cortical necrosis [Recovering/Resolving]
  - Renal failure [Recovering/Resolving]
